FAERS Safety Report 10053249 (Version 1)
Quarter: 2014Q2

REPORT INFORMATION
  Report Type: Spontaneous
  Country: US (occurrence: US)
  Receive Date: 20140402
  Receipt Date: 20140402
  Transmission Date: 20141212
  Serious: Yes (Hospitalization)
  Sender: FDA-Public Use
  Company Number: US-BRISTOL-MYERS SQUIBB COMPANY-20555710

PATIENT
  Age: 40 Year
  Sex: Female
  Weight: 103.85 kg

DRUGS (3)
  1. ABATACEPT SUBQ INJECTION 125MG/ML [Suspect]
     Route: 058
     Dates: start: 2013
  2. METHOTREXATE [Concomitant]
  3. FOLIC ACID [Concomitant]

REACTIONS (2)
  - Abortion spontaneous [Unknown]
  - Maternal exposure during pregnancy [Recovered/Resolved]
